FAERS Safety Report 20653779 (Version 1)
Quarter: 2022Q1

REPORT INFORMATION
  Report Type: Spontaneous
  Country: US (occurrence: None)
  Receive Date: 20220329
  Receipt Date: 20220329
  Transmission Date: 20220423
  Serious: Yes (Other)
  Sender: FDA-Public Use
  Company Number: None

PATIENT
  Age: 67 Year
  Sex: Female
  Weight: 54 kg

DRUGS (1)
  1. AIMOVIG [Suspect]
     Active Substance: ERENUMAB-AOOE
     Indication: Migraine without aura
     Dosage: OTHER FREQUENCY : MONTHLY;?
     Route: 058
     Dates: start: 20220315, end: 20220315

REACTIONS (1)
  - Behcet^s syndrome [None]

NARRATIVE: CASE EVENT DATE: 20220315
